FAERS Safety Report 9081716 (Version 1)
Quarter: 2013Q1

REPORT INFORMATION
  Report Type: Report from Study
  Country: US (occurrence: US)
  Receive Date: 20130130
  Receipt Date: 20130130
  Transmission Date: 20140127
  Serious: No
  Sender: FDA-Public Use
  Company Number: US-ABBOTT-12P-163-0959422-00

PATIENT
  Age: 59 Year
  Sex: Female

DRUGS (7)
  1. HUMIRA 40 MG/0.8 ML PEN [Suspect]
     Indication: CROHN^S DISEASE
     Dates: start: 2008
  2. RESTORIL [Concomitant]
     Indication: INSOMNIA
  3. CARBIDOPA LEVODOPA [Concomitant]
     Indication: RESTLESS LEGS SYNDROME
     Dosage: 10/100- 3 IN AM AND 2 IN PM
  4. WELLBUTRIN [Concomitant]
     Indication: DEPRESSION
     Dosage: 150MG DAILY
  5. OMEPRAZOLE [Concomitant]
     Indication: GASTROOESOPHAGEAL REFLUX DISEASE
     Dosage: 40MG DAILY
  6. LISINOPRIL/HCTZ [Concomitant]
     Indication: HYPERTENSION
     Dosage: 10/12.5MG 1 IN AM
  7. NIFEDIAC CC [Concomitant]
     Indication: HYPERTENSION
     Dosage: 60MG DAILY

REACTIONS (4)
  - Device malfunction [Recovering/Resolving]
  - Injection site injury [Recovering/Resolving]
  - Injection site bruising [Recovering/Resolving]
  - Incorrect dose administered [Recovering/Resolving]
